FAERS Safety Report 21210536 (Version 9)
Quarter: 2023Q2

REPORT INFORMATION
  Report Type: Report from Study
  Country: US (occurrence: US)
  Receive Date: 20220815
  Receipt Date: 20230605
  Transmission Date: 20230722
  Serious: Yes (Hospitalization)
  Sender: FDA-Public Use
  Company Number: US-NOVARTISTESTPH-NVSC2022US183952

PATIENT
  Sex: Male
  Weight: 78.776 kg

DRUGS (6)
  1. TREPROSTINIL [Suspect]
     Active Substance: TREPROSTINIL
     Indication: Pulmonary arterial hypertension
     Dosage: 2 NG/KG/MIN, CONT
     Route: 058
     Dates: start: 20211105
  2. TREPROSTINIL [Suspect]
     Active Substance: TREPROSTINIL
     Dosage: 7 NG/KG/MIN, CONT
     Route: 058
     Dates: start: 20220727
  3. TREPROSTINIL [Suspect]
     Active Substance: TREPROSTINIL
     Dosage: 12 NG/KG/MIN, CONT
     Route: 058
  4. TREPROSTINIL [Suspect]
     Active Substance: TREPROSTINIL
     Dosage: 15 NG/KG/MIN, CONT
     Route: 058
  5. TREPROSTINIL [Suspect]
     Active Substance: TREPROSTINIL
     Dosage: 17 NG/KG/MIN, CONT
     Route: 065
     Dates: start: 20220727
  6. TADALAFIL [Concomitant]
     Active Substance: TADALAFIL
     Indication: Product used for unknown indication
     Dosage: UNK
     Route: 065

REACTIONS (9)
  - Respiratory failure [Unknown]
  - Dyspnoea [Unknown]
  - Diarrhoea [Unknown]
  - Blood pressure decreased [Recovering/Resolving]
  - Infusion site pain [Recovered/Resolved]
  - Infusion site discomfort [Unknown]
  - Infusion site erythema [Unknown]
  - Injection site haemorrhage [Unknown]
  - Drug ineffective [Unknown]
